FAERS Safety Report 12600151 (Version 1)
Quarter: 2016Q3

REPORT INFORMATION
  Report Type: Spontaneous
  Country: US (occurrence: US)
  Receive Date: 20160727
  Receipt Date: 20160727
  Transmission Date: 20161109
  Serious: Yes (Hospitalization)
  Sender: FDA-Public Use
  Company Number: US-WATSON-2016-15556

PATIENT
  Age: 69 Year
  Sex: Female

DRUGS (5)
  1. NITROFURANTOIN CAPSULES USP (MACROCRYSTALS) (WATSON LABORATORI [Suspect]
     Active Substance: NITROFURANTOIN
     Indication: URINARY TRACT INFECTION
     Dosage: 100 MG, TWICE DAILY
     Route: 048
     Dates: start: 20160707
  2. INDERAL [Concomitant]
     Active Substance: PROPRANOLOL HYDROCHLORIDE
     Indication: CARDIAC DISORDER
     Dosage: UNK, UNKNOWN
     Route: 065
  3. NITROFURANTOIN CAPSULES USP (MACROCRYSTALS) (WATSON LABORATORI [Suspect]
     Active Substance: NITROFURANTOIN
     Dosage: 100 MG, ONCE DAILY
     Route: 048
     Dates: start: 20160712
  4. ELIQUIS [Concomitant]
     Active Substance: APIXABAN
     Indication: ANTICOAGULANT THERAPY
     Dosage: UNKNOWN
     Route: 065
  5. FLECAINIDE [Concomitant]
     Active Substance: FLECAINIDE
     Indication: ARRHYTHMIA
     Dosage: UNKNOWN
     Route: 065

REACTIONS (1)
  - Atrial fibrillation [Recovered/Resolved]

NARRATIVE: CASE EVENT DATE: 20160712
